FAERS Safety Report 11632842 (Version 1)
Quarter: 2015Q4

REPORT INFORMATION
  Report Type: Spontaneous
  Country: US (occurrence: US)
  Receive Date: 20151015
  Receipt Date: 20151015
  Transmission Date: 20160304
  Serious: Yes (Life-Threatening, Other)
  Sender: FDA-Public Use
  Company Number: US-APOTEX-2015AP006738

PATIENT
  Age: 18 Year
  Sex: Female
  Weight: 33 kg

DRUGS (4)
  1. FENTANYL. [Suspect]
     Active Substance: FENTANYL
     Indication: BONE OPERATION
     Dosage: 250 ?G, SINGLE
     Route: 065
  2. HYDROMORPHONE [Suspect]
     Active Substance: HYDROMORPHONE
     Indication: BONE OPERATION
     Dosage: 0.4 MG, UNKNOWN
     Route: 065
  3. HYDROMORPHONE [Suspect]
     Active Substance: HYDROMORPHONE
     Dosage: 0.3 MG, UNKNOWN
     Route: 065
  4. MIDAZOLAM HYDROCHLORIDE INJECTION [Suspect]
     Active Substance: MIDAZOLAM HYDROCHLORIDE
     Indication: BONE OPERATION
     Dosage: 2 MG, SINGLE
     Route: 042

REACTIONS (1)
  - Respiratory depression [Recovered/Resolved]
